FAERS Safety Report 8777837 (Version 1)
Quarter: 2012Q4

REPORT INFORMATION
  Report Type: 
  Country: US (occurrence: US)
  Receive Date: 20120911
  Receipt Date: 20120911
  Transmission Date: 20130627
  Serious: No
  Sender: FDA-Public Use
  Company Number: PHEH2012US017306

PATIENT
  Sex: Female

DRUGS (1)
  1. TASIGNA [Suspect]
     Dosage: 450 mg, QD4SDO
     Route: 048

REACTIONS (3)
  - Drug administration error [Unknown]
  - Hypersomnia [Unknown]
  - Incorrect dose administered [None]
